FAERS Safety Report 9402960 (Version 1)
Quarter: 2013Q3

REPORT INFORMATION
  Report Type: Spontaneous
  Country: DE (occurrence: DE)
  Receive Date: 20130716
  Receipt Date: 20130716
  Transmission Date: 20140515
  Serious: Yes (Hospitalization)
  Sender: FDA-Public Use
  Company Number: DE-JNJFOC-20130705017

PATIENT
  Age: 77 Year
  Sex: Male
  Weight: 74 kg

DRUGS (15)
  1. DURAGESIC [Suspect]
     Indication: PAIN
     Route: 062
     Dates: start: 20130610, end: 20130613
  2. AXITINIB [Suspect]
     Indication: RENAL CELL CARCINOMA
     Route: 048
     Dates: start: 20130526
  3. PANTOZOL [Concomitant]
     Indication: DYSPEPSIA
     Dosage: 40 (UNITS UNSPECIFIED)
     Route: 048
  4. RAMIPRIL [Concomitant]
     Dosage: 2.5 (UNITS UNSPECIFIED)
     Route: 048
  5. SPIRONOLACTONE [Concomitant]
     Dosage: 50 (UNITS UNSPECIFIED) HALF DOSE
     Route: 048
  6. TOREM [Concomitant]
     Dosage: 10 (UNITS UNSPECIFIED)
     Route: 048
  7. SALBUTAMOL [Concomitant]
     Route: 055
  8. MACROGOL [Concomitant]
     Route: 048
  9. NOVALGIN [Concomitant]
     Route: 048
  10. BELOC-ZOK MITE [Concomitant]
     Route: 048
  11. ACETYL SALICYLIC ACID [Concomitant]
     Route: 048
  12. NOVOPULMON [Concomitant]
     Route: 055
  13. FORADILE [Concomitant]
     Dosage: 12
     Route: 065
  14. SODIUM CHLORIDE [Concomitant]
     Indication: FLUID REPLACEMENT
     Route: 042
     Dates: start: 20130613, end: 20130625
  15. SARKOTHER [Concomitant]
     Route: 065

REACTIONS (3)
  - General physical health deterioration [Recovering/Resolving]
  - Pneumonia [Recovering/Resolving]
  - Arthralgia [Recovering/Resolving]
